FAERS Safety Report 16589728 (Version 1)
Quarter: 2019Q3

REPORT INFORMATION
  Report Type: Other
  Country: US (occurrence: US)
  Receive Date: 20190718
  Receipt Date: 20190718
  Transmission Date: 20191004
  Serious: No
  Sender: FDA-Public Use
  Company Number: US-SWEDISH ORPHAN BIOVITRUM-2019US0784

PATIENT
  Sex: Female

DRUGS (9)
  1. KINERET [Suspect]
     Active Substance: ANAKINRA
     Route: 058
  2. IBUPROFEN. [Concomitant]
     Active Substance: IBUPROFEN
  3. PANTOPRAZOLE [Concomitant]
     Active Substance: PANTOPRAZOLE
  4. RANITIDINE. [Concomitant]
     Active Substance: RANITIDINE
  5. COLCHICINE. [Concomitant]
     Active Substance: COLCHICINE
  6. VITAMINE D [Concomitant]
     Active Substance: CHOLECALCIFEROL
  7. PROBIOTICS [Concomitant]
     Active Substance: PROBIOTICS NOS
  8. MULTIVITAMINE [Concomitant]
  9. TRISTIQ [Concomitant]

REACTIONS (1)
  - Injection site urticaria [Recovering/Resolving]
